FAERS Safety Report 6669767-6 (Version None)
Quarter: 2010Q2

REPORT INFORMATION
  Report Type: 
  Country: None (occurrence: None)
  Receive Date: 20100402
  Receipt Date: 20100322
  Transmission Date: 20101027
  Serious: Yes (Life-Threatening, Hospitalization)
  Sender: FDA-Public Use
  Company Number: 1000012904

PATIENT
  Age: 64 Year
  Sex: Male

DRUGS (9)
  1. ESCITALOPRAM [Suspect]
     Indication: DEPRESSION
     Dosage: 10 MG (10 MG, 1 IN 1 D), ORAL
     Route: 048
     Dates: start: 20091020, end: 20091106
  2. ESCITALOPRAM [Suspect]
     Indication: DEPRESSION
     Dosage: 20 MG (20 MG, 1 IN 1 D), ORAL; 20 MG, ORAL
     Route: 048
     Dates: start: 20091107, end: 20091108
  3. ESCITALOPRAM [Suspect]
     Indication: DEPRESSION
     Dosage: 20 MG (20 MG, 1 IN 1 D), ORAL; 20 MG, ORAL
     Route: 048
     Dates: start: 20091117
  4. VALIUM [Suspect]
     Indication: ALCOHOL DETOXIFICATION
     Dosage: 20 MG (20 MG, 1 IN 1 D), ORAL
     Route: 048
     Dates: start: 20091017, end: 20091026
  5. VALIUM [Suspect]
     Indication: ALCOHOL DETOXIFICATION
     Dosage: 5 MG (5 MG, 1 IN 1 D), ORAL
     Route: 048
     Dates: start: 20091027, end: 20091108
  6. TIAPRIDAL (TABLETS) [Suspect]
     Indication: DEPRESSION
     Dosage: 150 MG (150 MG, 1 IN 1 D), ORAL
     Route: 048
     Dates: start: 20091106, end: 20091108
  7. MEPRONIZINE (TABLETS) [Suspect]
     Indication: INSOMNIA
     Dosage: (ONCE), ORAL
     Route: 048
     Dates: start: 20091108, end: 20091108
  8. BUSPAR [Suspect]
     Indication: DEPRESSION
     Dosage: 30 MG (10 MG, 3 IN 1 D), ORAL
     Route: 048
     Dates: start: 20091106, end: 20091108
  9. PREVISCAN [Concomitant]

REACTIONS (7)
  - ALTERED STATE OF CONSCIOUSNESS [None]
  - BRADYCARDIA [None]
  - CONFUSIONAL STATE [None]
  - DRUG INTERACTION [None]
  - DRUG TOXICITY [None]
  - HYPOTHERMIA [None]
  - PNEUMONIA ASPIRATION [None]
